FAERS Safety Report 5053782-2 (Version None)
Quarter: 2006Q2

REPORT INFORMATION
  Report Type: 
  Country: None (occurrence: None)
  Receive Date: 20060614
  Receipt Date: 20060327
  Transmission Date: 20061013
  Serious: Yes (Other)
  Sender: FDA-Public Use
  Company Number: 442255

PATIENT
  Age: 63 Year
  Sex: Female

DRUGS (3)
  1. BONIVA [Suspect]
     Indication: OSTEOPOROSIS
     Dosage: 1 DOSE FORM 1 PER MONTH ORAL
     Route: 048
     Dates: start: 20050815
  2. MULTIVITAMINS NOS (MULTIVITAMINE NOS) [Concomitant]
  3. UNSPECIFIED DRUG (GENERIC) [Concomitant]

REACTIONS (6)
  - DYSPNOEA [None]
  - MYALGIA [None]
  - PAIN IN EXTREMITY [None]
  - STOMACH DISCOMFORT [None]
  - SWELLING FACE [None]
  - URTICARIA [None]
